FAERS Safety Report 23493973 (Version 4)
Quarter: 2024Q2

REPORT INFORMATION
  Report Type: Spontaneous
  Country: US (occurrence: US)
  Receive Date: 20240207
  Receipt Date: 20240430
  Transmission Date: 20240716
  Serious: No
  Sender: FDA-Public Use
  Company Number: US-PFIZER INC-202400017308

PATIENT
  Age: 9 Year
  Sex: Female
  Weight: 54.422 kg

DRUGS (1)
  1. GENOTROPIN [Suspect]
     Active Substance: SOMATROPIN
     Indication: Growth disorder
     Dosage: 0.9
     Dates: start: 2016

REACTIONS (1)
  - Device information output issue [Recovered/Resolved]
